FAERS Safety Report 16680246 (Version 1)
Quarter: 2019Q3

REPORT INFORMATION
  Report Type: Spontaneous
  Country: JP (occurrence: JP)
  Receive Date: 20190807
  Receipt Date: 20190807
  Transmission Date: 20191004
  Serious: Yes (Hospitalization, Other)
  Sender: FDA-Public Use
  Company Number: JP-BRISTOL-MYERS SQUIBB COMPANY-BMS-2019-077227

PATIENT
  Age: 51 Year

DRUGS (1)
  1. METGLUCO [Suspect]
     Active Substance: METFORMIN HYDROCHLORIDE
     Indication: TYPE 2 DIABETES MELLITUS
     Dosage: UNK
     Route: 048
     Dates: start: 201907, end: 201907

REACTIONS (4)
  - Acute myocardial infarction [Unknown]
  - Peripheral artery occlusion [Recovered/Resolved]
  - Blood pressure decreased [Recovered/Resolved]
  - Blood pH decreased [Recovered/Resolved]

NARRATIVE: CASE EVENT DATE: 20190716
